FAERS Safety Report 5729414-4 (Version None)
Quarter: 2008Q2

REPORT INFORMATION
  Report Type: 
  Country: None (occurrence: None)
  Receive Date: 20080430
  Receipt Date: 20080217
  Transmission Date: 20081010
  Serious: No
  Sender: FDA-Public Use
  Company Number: 2008PV034281

PATIENT
  Age: 64 Year
  Sex: Female

DRUGS (4)
  1. SYMLIN [Suspect]
     Indication: DIABETES MELLITUS
     Dosage: 30 MCG;TID;SC; 15 MCG;TID;SC
     Route: 058
     Dates: start: 20080214, end: 20080216
  2. SYMLIN [Suspect]
     Indication: DIABETES MELLITUS
     Dosage: 30 MCG;TID;SC; 15 MCG;TID;SC
     Route: 058
     Dates: start: 20080216
  3. HUMALOG [Concomitant]
  4. INSULIN DETEMIR [Concomitant]

REACTIONS (4)
  - BLOOD GLUCOSE DECREASED [None]
  - BLOOD GLUCOSE INCREASED [None]
  - DIABETES MELLITUS INADEQUATE CONTROL [None]
  - DIZZINESS [None]
